FAERS Safety Report 15428342 (Version 1)
Quarter: 2018Q3

REPORT INFORMATION
  Report Type: Spontaneous
  Country: US (occurrence: US)
  Receive Date: 20180926
  Receipt Date: 20180926
  Transmission Date: 20181010
  Serious: No
  Sender: FDA-Public Use
  Company Number: US-ASTRAZENECA-2018SF16026

PATIENT
  Age: 599 Month
  Sex: Female
  Weight: 77.1 kg

DRUGS (2)
  1. PULMICORT FLEXHALER [Suspect]
     Active Substance: BUDESONIDE
     Indication: ASTHMA
     Dosage: 90 MCG ONE PUFF TWICE PER DAY
     Route: 055
     Dates: start: 201801
  2. WELLBUTRIN [Concomitant]
     Active Substance: BUPROPION HYDROCHLORIDE
     Indication: HOT FLUSH
     Route: 065
     Dates: start: 2017

REACTIONS (5)
  - Underdose [Unknown]
  - Mass [Unknown]
  - Intentional product misuse [Unknown]
  - Device issue [Unknown]
  - Oropharyngeal pain [Unknown]

NARRATIVE: CASE EVENT DATE: 20180903
